FAERS Safety Report 5868227-X (Version None)
Quarter: 2008Q3

REPORT INFORMATION
  Report Type: 
  Country: None (occurrence: None)
  Receive Date: 20080902
  Receipt Date: 20080821
  Transmission Date: 20090109
  Serious: Yes (Hospitalization)
  Sender: FDA-Public Use
  Company Number: US-AMGEN-US303299

PATIENT
  Sex: Female
  Weight: 49 kg

DRUGS (6)
  1. NEULASTA [Suspect]
     Indication: DRUG USE FOR UNKNOWN INDICATION
     Route: 065
     Dates: start: 20080328, end: 20080802
  2. UNSPECIFIED ANTINEOPLASTIC AGENT [Suspect]
     Indication: DRUG USE FOR UNKNOWN INDICATION
     Route: 042
     Dates: start: 20080301, end: 20080801
  3. ATIVAN [Concomitant]
     Route: 065
  4. PRILOSEC [Concomitant]
     Route: 048
  5. PHENERGAN HCL [Concomitant]
     Route: 065
  6. PREDNISONE TAB [Concomitant]
     Route: 065

REACTIONS (2)
  - CHEST PAIN [None]
  - DEHYDRATION [None]
